FAERS Safety Report 21889272 (Version 1)
Quarter: 2023Q1

REPORT INFORMATION
  Report Type: Report from Study
  Country: GB (occurrence: GB)
  Receive Date: 20230120
  Receipt Date: 20230120
  Transmission Date: 20230417
  Serious: Yes (Other)
  Sender: FDA-Public Use
  Company Number: GB-ABBVIE-4276919

PATIENT
  Sex: Male

DRUGS (2)
  1. CARBIDOPA\LEVODOPA [Suspect]
     Active Substance: CARBIDOPA\LEVODOPA
     Indication: Parkinson^s disease
     Dosage: 20MGS/5MGS; MD: BELIEVED TO BE AROUND 11.0MLS, ED:2.5MLS, CR: 5.4MLS; DAILY DOSE: 90-97MLS
     Route: 050
  2. CARBIDOPA\LEVODOPA [Suspect]
     Active Substance: CARBIDOPA\LEVODOPA

REACTIONS (13)
  - Cerebrovascular accident [Unknown]
  - Device alarm issue [Not Recovered/Not Resolved]
  - Malaise [Unknown]
  - Asthenia [Not Recovered/Not Resolved]
  - Stoma site odour [Recovered/Resolved]
  - Device issue [Recovered/Resolved]
  - Discomfort [Unknown]
  - Medical device site mass [Not Recovered/Not Resolved]
  - Stoma site reaction [Recovered/Resolved]
  - Urinary tract infection [Not Recovered/Not Resolved]
  - Stoma site haemorrhage [Recovered/Resolved]
  - Stoma site discharge [Recovered/Resolved]
  - Device leakage [Not Recovered/Not Resolved]
